FAERS Safety Report 13010573 (Version 1)
Quarter: 2016Q4

REPORT INFORMATION
  Report Type: Not Available
  Country: US (occurrence: US)
  Receive Date: 20161208
  Receipt Date: 20161208
  Transmission Date: 20170207
  Serious: Yes (Hospitalization)
  Sender: FDA-Public Use
  Company Number: US-3M-2016-US-009559

PATIENT
  Age: 70 Year
  Sex: Female

DRUGS (3)
  1. SIMVASTATIN. [Concomitant]
     Active Substance: SIMVASTATIN
  2. PERIDEX [Suspect]
     Active Substance: CHLORHEXIDINE GLUCONATE
     Dosage: ORAL RINSE TWICE DAILY
     Route: 048
     Dates: start: 20160913, end: 20161006
  3. METOPROLOL. [Concomitant]
     Active Substance: METOPROLOL
     Dosage: 50 MG

REACTIONS (10)
  - Dysgeusia [Not Recovered/Not Resolved]
  - Weight decreased [Not Recovered/Not Resolved]
  - Arthralgia [Unknown]
  - Platelet count decreased [Unknown]
  - Abdominal mass [Unknown]
  - Nerve compression [Unknown]
  - Upper-airway cough syndrome [Not Recovered/Not Resolved]
  - Anaemia [Unknown]
  - Hospitalisation [Unknown]
  - Liver function test abnormal [Unknown]

NARRATIVE: CASE EVENT DATE: 20161006
